FAERS Safety Report 10912814 (Version 1)
Quarter: 2015Q1

REPORT INFORMATION
  Report Type: Spontaneous
  Country: FR (occurrence: FR)
  Receive Date: 20150313
  Receipt Date: 20150313
  Transmission Date: 20150721
  Serious: Yes (Hospitalization)
  Sender: FDA-Public Use
  Company Number: FR-PFIZER INC-2015091123

PATIENT
  Age: 67 Year
  Sex: Male

DRUGS (7)
  1. GLIMEPIRIDE. [Suspect]
     Active Substance: GLIMEPIRIDE
     Dosage: 1 DF, DAILY
     Route: 048
  2. PRAVASTATIN SODIUM. [Suspect]
     Active Substance: PRAVASTATIN SODIUM
     Dosage: 40 MG, DAILY
     Route: 048
  3. KARDEGIC [Suspect]
     Active Substance: ASPIRIN LYSINE
     Dosage: 75 ML, EVERY HOUR
     Route: 048
  4. METFORMIN HCL [Suspect]
     Active Substance: METFORMIN HYDROCHLORIDE
     Dosage: 500 MG, DAILY
     Route: 048
  5. XARELTO [Suspect]
     Active Substance: RIVAROXABAN
     Dosage: 20 MG, DAILY
     Route: 048
  6. AMIODARONE HCL [Suspect]
     Active Substance: AMIODARONE HYDROCHLORIDE
     Dosage: 1 DF, DAILY
     Route: 048
  7. RAMIPRIL. [Suspect]
     Active Substance: RAMIPRIL
     Dosage: 1 DF, DAILY
     Route: 048

REACTIONS (1)
  - Ischaemic stroke [Recovered/Resolved]

NARRATIVE: CASE EVENT DATE: 20150117
